FAERS Safety Report 16624217 (Version 1)
Quarter: 2019Q3

REPORT INFORMATION
  Report Type: Spontaneous
  Country: US (occurrence: US)
  Receive Date: 20190724
  Receipt Date: 20190724
  Transmission Date: 20191004
  Serious: No
  Sender: FDA-Public Use
  Company Number: US-GLENMARK PHARMACEUTICALS-2019GMK041526

PATIENT

DRUGS (2)
  1. TACROZ OINTMENT 0.1% [Suspect]
     Active Substance: TACROLIMUS
     Indication: GENITAL RASH
  2. TACROZ OINTMENT 0.1% [Suspect]
     Active Substance: TACROLIMUS
     Indication: LICHEN SCLEROSUS
     Dosage: UNK, SINGLE
     Route: 061
     Dates: start: 20190524, end: 20190525

REACTIONS (5)
  - Product use in unapproved indication [Unknown]
  - Lichen sclerosus [Not Recovered/Not Resolved]
  - Condition aggravated [Unknown]
  - Application site pain [Not Recovered/Not Resolved]
  - Rash [Not Recovered/Not Resolved]

NARRATIVE: CASE EVENT DATE: 201905
